FAERS Safety Report 11713065 (Version 1)
Quarter: 2015Q4

REPORT INFORMATION
  Report Type: Spontaneous
  Country: FR (occurrence: FR)
  Receive Date: 20151109
  Receipt Date: 20151109
  Transmission Date: 20160304
  Serious: Yes (Hospitalization)
  Sender: FDA-Public Use
  Company Number: FR-009507513-1511FRA002560

PATIENT
  Age: 65 Year
  Sex: Male

DRUGS (16)
  1. DOLIPRANE [Suspect]
     Active Substance: ACETAMINOPHEN
     Indication: PRODUCT USED FOR UNKNOWN INDICATION
     Dosage: 2 DF, BID (IF NEEDED)
     Route: 048
     Dates: end: 20151015
  2. LERCANIDIPINE [Concomitant]
     Active Substance: LERCANIDIPINE
  3. CLOXACILLIN [Suspect]
     Active Substance: CLOXACILLIN
     Dosage: 6 MG, QID
     Route: 042
     Dates: start: 20151014, end: 20151016
  4. TAHOR [Concomitant]
     Active Substance: ATORVASTATIN CALCIUM
  5. SERESTA [Concomitant]
     Active Substance: OXAZEPAM
  6. HUMALOG [Concomitant]
     Active Substance: INSULIN LISPRO
     Dosage: UNK
     Dates: start: 20151006
  7. KARDEGIC [Concomitant]
     Active Substance: ASPIRIN LYSINE
     Dosage: UNK
     Dates: start: 20151013
  8. CLOXACILLIN [Suspect]
     Active Substance: CLOXACILLIN
     Indication: PRODUCT USED FOR UNKNOWN INDICATION
     Dosage: 4 MG, QID
     Route: 042
     Dates: start: 20151006, end: 20151007
  9. CLAIRYG [Suspect]
     Active Substance: HUMAN IMMUNOGLOBULIN G
     Indication: PRODUCT USED FOR UNKNOWN INDICATION
     Dosage: 25 MG, QD
     Route: 042
     Dates: start: 20151014, end: 20151016
  10. RIMACTAN [Concomitant]
     Active Substance: RIFAMPIN
     Dosage: UNK
     Dates: start: 20151006
  11. PLAVIX [Suspect]
     Active Substance: CLOPIDOGREL BISULFATE
     Indication: PRODUCT USED FOR UNKNOWN INDICATION
     Dosage: 75 MG, UNK
     Route: 048
     Dates: end: 20151013
  12. SMECTA [Concomitant]
     Active Substance: MONTMORILLONITE
     Dosage: UNK
     Dates: start: 20151006, end: 20151009
  13. GAVISCON (ALGINIC ACID (+) SODIUM BICARBONATE) [Concomitant]
  14. EPINITRIL [Concomitant]
     Active Substance: NITROGLYCERIN
     Dosage: UNK
     Dates: end: 20151007
  15. DAPTOMYCIN. [Suspect]
     Active Substance: DAPTOMYCIN
     Indication: PRODUCT USED FOR UNKNOWN INDICATION
     Dosage: 740 MG, QD
     Route: 042
     Dates: start: 20151006, end: 20151014
  16. ZAMUDOL [Suspect]
     Active Substance: TRAMADOL HYDROCHLORIDE
     Indication: PRODUCT USED FOR UNKNOWN INDICATION
     Dosage: 50 MG, BID
     Route: 048
     Dates: start: 20151006, end: 20151006

REACTIONS (2)
  - Hepatocellular injury [Recovered/Resolved]
  - Thrombocytopenia [Recovered/Resolved]

NARRATIVE: CASE EVENT DATE: 20151008
